FAERS Safety Report 8793156 (Version 2)
Quarter: 2013Q4

REPORT INFORMATION
  Report Type: Spontaneous
  Country: US (occurrence: US)
  Receive Date: 20120918
  Receipt Date: 20131031
  Transmission Date: 20140711
  Serious: Yes (Hospitalization, Other)
  Sender: FDA-Public Use
  Company Number: US-009507513-1209USA006050

PATIENT
  Age: 43 Year
  Sex: Male

DRUGS (2)
  1. SAPHRIS [Suspect]
     Dosage: 10 MG, BID
     Route: 060
  2. SAPHRIS [Suspect]
     Dosage: 5 MG, BID
     Route: 060

REACTIONS (5)
  - Tremor [Unknown]
  - Muscle spasms [Unknown]
  - Dizziness [Unknown]
  - Renal failure acute [Unknown]
  - Depressed mood [Unknown]
